FAERS Safety Report 4794367-2 (Version None)
Quarter: 2005Q4

REPORT INFORMATION
  Report Type: 
  Country: None (occurrence: None)
  Receive Date: 20051011
  Receipt Date: 20050927
  Transmission Date: 20060501
  Serious: Yes (Death, Life-Threatening, Hospitalization, Disabling, Other)
  Sender: FDA-Public Use
  Company Number: US-MERCK-0509USA04397

PATIENT
  Age: 62 Year
  Sex: Female
  Weight: 60 kg

DRUGS (8)
  1. CANCIDAS [Suspect]
     Indication: SYSTEMIC CANDIDA
     Route: 041
     Dates: start: 20050720, end: 20050720
  2. CANCIDAS [Suspect]
     Route: 041
     Dates: start: 20050721, end: 20050726
  3. FUROSEMIDE [Concomitant]
     Route: 065
  4. PROTONIX [Concomitant]
     Route: 065
  5. MORPHINE [Concomitant]
     Route: 065
  6. LORAZEPAM [Concomitant]
     Route: 065
  7. AMINO ACIDS (UNSPECIFIED) AND CARBOHYDRATES (UNSPECIFIED) AND ELECTROL [Concomitant]
     Route: 065
  8. ALBUTEROL [Concomitant]
     Route: 065

REACTIONS (3)
  - MULTI-ORGAN FAILURE [None]
  - NEUTROPENIA [None]
  - NEUTROPHIL COUNT DECREASED [None]
